FAERS Safety Report 14420016 (Version 2)
Quarter: 2018Q1

REPORT INFORMATION
  Report Type: Spontaneous
  Country: RO (occurrence: RO)
  Receive Date: 20180122
  Receipt Date: 20180214
  Transmission Date: 20180509
  Serious: Yes (Death, Hospitalization)
  Sender: FDA-Public Use
  Company Number: RO-PFIZER INC-2018026126

PATIENT
  Sex: Male

DRUGS (2)
  1. SUTENT [Suspect]
     Active Substance: SUNITINIB MALATE
     Dosage: 50 MG, CYCLIC (4 WEEKS ON TREATMENT WITH 2 WEEKS PAUSE)
  2. SUTENT [Suspect]
     Active Substance: SUNITINIB MALATE
     Indication: METASTATIC RENAL CELL CARCINOMA
     Dosage: 50 MG, CYCLIC (4 WEEKS ON TREATMENT WITH 2 WEEKS PAUSE)
     Dates: start: 2015, end: 2016

REACTIONS (11)
  - Decreased appetite [Unknown]
  - Dyskinesia [Unknown]
  - Hypoaesthesia [Unknown]
  - Hypotonia [Unknown]
  - Chest pain [Unknown]
  - Death [Fatal]
  - Neoplasm progression [Unknown]
  - General physical health deterioration [Unknown]
  - Suffocation feeling [Unknown]
  - Abdominal pain upper [Unknown]
  - Dysphagia [Unknown]

NARRATIVE: CASE EVENT DATE: 2017
